FAERS Safety Report 17523651 (Version 1)
Quarter: 2020Q1

REPORT INFORMATION
  Report Type: Spontaneous
  Country: US (occurrence: US)
  Receive Date: 20200310
  Receipt Date: 20200310
  Transmission Date: 20200409
  Serious: No
  Sender: FDA-Public Use
  Company Number: US-AMGEN-USASP2020038965

PATIENT
  Sex: Female

DRUGS (2)
  1. REPATHA [Suspect]
     Active Substance: EVOLOCUMAB
     Indication: PRODUCT USED FOR UNKNOWN INDICATION
     Dosage: 140 MILLIGRAM
     Route: 065
  2. TRULICITY [Concomitant]
     Active Substance: DULAGLUTIDE
     Indication: LYMPHADENOPATHY
     Dosage: UNK

REACTIONS (3)
  - Urinary tract infection [Recovered/Resolved]
  - Tooth abscess [Recovering/Resolving]
  - Nasopharyngitis [Not Recovered/Not Resolved]
